FAERS Safety Report 11360648 (Version 2)
Quarter: 2016Q1

REPORT INFORMATION
  Report Type: Spontaneous
  Country: BE (occurrence: BE)
  Receive Date: 20150810
  Receipt Date: 20160205
  Transmission Date: 20160525
  Serious: Yes (Other)
  Sender: FDA-Public Use
  Company Number: BE-JNJFOC-20150419825

PATIENT
  Age: 24 Year
  Sex: Female
  Weight: 55 kg

DRUGS (5)
  1. REMICADE [Suspect]
     Active Substance: INFLIXIMAB
     Indication: UVEITIS
     Route: 042
     Dates: start: 20150530
  2. MEDROL [Concomitant]
     Active Substance: METHYLPREDNISOLONE
     Dosage: WAS BREAKDOWN SCHEME STARTING 16 MG-4MG
     Route: 048
     Dates: end: 20150722
  3. REMICADE [Suspect]
     Active Substance: INFLIXIMAB
     Indication: UVEITIS
     Dosage: 15 VIALS IN 6 PERIODS
     Route: 042
     Dates: start: 20150730
  4. METHOTREXATE [Concomitant]
     Active Substance: METHOTREXATE
     Indication: ARTHRITIS
     Dosage: GOOD EFFECT ON ARTHRITIS NOT ON THE EYE
     Route: 030
     Dates: start: 20150425
  5. PRED FORTE [Concomitant]
     Active Substance: PREDNISOLONE ACETATE
     Route: 061

REACTIONS (6)
  - Angle closure glaucoma [Unknown]
  - Eye pruritus [Unknown]
  - Product use issue [Unknown]
  - Eye pain [Unknown]
  - Cataract [Unknown]
  - Off label use [Unknown]

NARRATIVE: CASE EVENT DATE: 20150530
